FAERS Safety Report 24120828 (Version 1)
Quarter: 2024Q3

REPORT INFORMATION
  Report Type: Spontaneous
  Country: US (occurrence: None)
  Receive Date: 20240718
  Receipt Date: 20240718
  Transmission Date: 20241016
  Serious: Yes (Other)
  Sender: Public
  Company Number: None

PATIENT
  Age: 48 Year
  Sex: Female
  Weight: 108 kg

DRUGS (4)
  1. LOMAIRA [Suspect]
     Active Substance: PHENTERMINE HYDROCHLORIDE
     Indication: Weight decreased
     Dosage: FREQUENCY : TWICE A DAY;?
     Route: 048
     Dates: start: 20240717, end: 20240717
  2. PLAQUENIL [Concomitant]
     Active Substance: HYDROXYCHLOROQUINE SULFATE
  3. METFORMIN [Concomitant]
     Active Substance: METFORMIN HYDROCHLORIDE
  4. LEVOTHYROXINE [Concomitant]
     Active Substance: LEVOTHYROXINE\LEVOTHYROXINE SODIUM

REACTIONS (17)
  - Euphoric mood [None]
  - Pressure of speech [None]
  - Irritability [None]
  - Palpitations [None]
  - Tachyphrenia [None]
  - Thinking abnormal [None]
  - Hunger [None]
  - Lack of satiety [None]
  - Anxiety [None]
  - Hyperhidrosis [None]
  - Sleep disorder [None]
  - Arthralgia [None]
  - Insomnia [None]
  - Memory impairment [None]
  - Mood swings [None]
  - Anger [None]
  - Paradoxical drug reaction [None]

NARRATIVE: CASE EVENT DATE: 20240717
